FAERS Safety Report 22709044 (Version 2)
Quarter: 2024Q2

REPORT INFORMATION
  Report Type: Spontaneous
  Country: BR (occurrence: BR)
  Receive Date: 20230717
  Receipt Date: 20240409
  Transmission Date: 20240716
  Serious: Yes (Other)
  Sender: FDA-Public Use
  Company Number: BR-ABBOTT-2023A-1366567

PATIENT
  Age: 16 Year
  Sex: Male
  Weight: 76 kg

DRUGS (2)
  1. DIVALPROEX SODIUM [Suspect]
     Active Substance: DIVALPROEX SODIUM
     Indication: Seizure
     Dosage: FOR 3 YEARS TOOK 3 AND 3 AND HAS BEEN USING DIVALCON ER FOR 5 YEARS, 250 MILLIGRAM
     Route: 048
  2. DIVALPROEX SODIUM [Suspect]
     Active Substance: DIVALPROEX SODIUM
     Indication: Seizure
     Dosage: 7 A DAY, 3 IN THE MORNING 750 MILLIGRAM AND 4 AT NIGHT AND 500 MILLIGRAM. STARTED 1 WEEK AGO IN 2...
     Route: 048
     Dates: start: 2023

REACTIONS (3)
  - Inappropriate schedule of product administration [Unknown]
  - Product complaint [Unknown]
  - Seizure [Unknown]
